FAERS Safety Report 4892477-2 (Version None)
Quarter: 2006Q1

REPORT INFORMATION
  Report Type: 
  Country: None (occurrence: None)
  Receive Date: 20060126
  Receipt Date: 20051026
  Transmission Date: 20060701
  Serious: No
  Sender: FDA-Public Use
  Company Number: US-BRISTOL-MYERS SQUIBB COMPANY-13158142

PATIENT
  Sex: Male
  Weight: 75 kg

DRUGS (1)
  1. CEFZIL [Suspect]

REACTIONS (1)
  - RASH [None]
